FAERS Safety Report 20008545 (Version 3)
Quarter: 2022Q2

REPORT INFORMATION
  Report Type: Other
  Country: CH (occurrence: None)
  Receive Date: 20211028
  Receipt Date: 20220520
  Transmission Date: 20220721
  Serious: Yes (Other)
  Sender: FDA-Public Use
  Company Number: CH-ROCHE-2775741

PATIENT
  Age: 27 Year
  Sex: Male
  Weight: 71 kg

DRUGS (4)
  1. EMICIZUMAB [Suspect]
     Active Substance: EMICIZUMAB
     Indication: Haemophilia A without inhibitors
     Route: 058
     Dates: start: 20210118, end: 20210208
  2. EMICIZUMAB [Suspect]
     Active Substance: EMICIZUMAB
     Dosage: ONGOING
     Route: 058
     Dates: start: 20210215
  3. ADVATE [Concomitant]
     Active Substance: ANTIHEMOPHILIC FACTOR, HUMAN RECOMBINANT
     Route: 040
     Dates: end: 20210116
  4. DAFALGAN [Concomitant]
     Active Substance: ACETAMINOPHEN
     Dosage: ONGOING
     Route: 048

REACTIONS (3)
  - Haemarthrosis [Recovered/Resolved]
  - Headache [Recovered/Resolved]
  - Arthralgia [Recovered/Resolved]

NARRATIVE: CASE EVENT DATE: 20210118
